FAERS Safety Report 11737235 (Version 1)
Quarter: 2015Q4

REPORT INFORMATION
  Report Type: Spontaneous
  Country: US (occurrence: US)
  Receive Date: 20151110
  Receipt Date: 20151110
  Transmission Date: 20160304
  Serious: No
  Sender: FDA-Public Use
  Company Number: US-ELI_LILLY_AND_COMPANY-US201206000672

PATIENT
  Sex: Female
  Weight: 45.35 kg

DRUGS (1)
  1. FORTEO [Suspect]
     Active Substance: TERIPARATIDE
     Indication: OSTEOPOROSIS
     Dosage: 20 UG, QD
     Route: 065

REACTIONS (5)
  - Fatigue [Not Recovered/Not Resolved]
  - Adverse reaction [Unknown]
  - Feeling abnormal [Unknown]
  - Vomiting [Unknown]
  - Nausea [Unknown]
